FAERS Safety Report 23908360 (Version 2)
Quarter: 2024Q2

REPORT INFORMATION
  Report Type: Spontaneous
  Country: US (occurrence: US)
  Receive Date: 20240528
  Receipt Date: 20240603
  Transmission Date: 20240716
  Serious: Yes (Life-Threatening)
  Sender: FDA-Public Use
  Company Number: US-TEVA-VS-3201628

PATIENT
  Age: 37 Year
  Sex: Female

DRUGS (1)
  1. VELIVET [Suspect]
     Active Substance: DESOGESTREL\ETHINYL ESTRADIOL
     Indication: Menstruation irregular
     Route: 065

REACTIONS (2)
  - Pulmonary embolism [Unknown]
  - Product use in unapproved indication [Unknown]
